FAERS Safety Report 10099013 (Version 1)
Quarter: 2014Q2

REPORT INFORMATION
  Report Type: Spontaneous
  Country: IT (occurrence: IT)
  Receive Date: 20140423
  Receipt Date: 20140423
  Transmission Date: 20141212
  Serious: Yes (Death)
  Sender: FDA-Public Use
  Company Number: IT-PFIZER INC-2014109789

PATIENT
  Age: 60 Year
  Sex: Male

DRUGS (1)
  1. ZAVEDOS [Suspect]
     Dosage: 45 MG/M2, ALTERNATE DAY
     Route: 042

REACTIONS (1)
  - Death [Fatal]
